FAERS Safety Report 15586374 (Version 1)
Quarter: 2018Q4

REPORT INFORMATION
  Report Type: Spontaneous
  Country: AT (occurrence: AT)
  Receive Date: 20181105
  Receipt Date: 20181105
  Transmission Date: 20190205
  Serious: Yes (Death, Life-Threatening, Hospitalization, Other)
  Sender: FDA-Public Use
  Company Number: AT-ACELLA PHARMACEUTICALS, LLC-2058394

PATIENT
  Age: 80 Year
  Sex: Female

DRUGS (31)
  1. TIOTROPIUM [Concomitant]
     Active Substance: TIOTROPIUM
     Route: 055
     Dates: start: 20130323
  2. DICLOFENAC SODIUM. [Concomitant]
     Active Substance: DICLOFENAC SODIUM
     Dates: start: 20130323
  3. LEVODOPA 100 MG / BENSERAZIDE 25 MG [Concomitant]
     Dates: start: 20130323
  4. GABAPENTIN. [Suspect]
     Active Substance: GABAPENTIN
     Indication: PAIN
     Dates: start: 20130323
  5. IBANDRONIC ACID. [Concomitant]
     Active Substance: IBANDRONIC ACID
     Dates: start: 20130323
  6. PREDNISONE. [Concomitant]
     Active Substance: PREDNISONE
     Dates: start: 20151123
  7. CLOPIDOGREL [Concomitant]
     Active Substance: CLOPIDOGREL BISULFATE
     Dates: start: 20151123
  8. ALGEDRATE GEL 340 MG [Concomitant]
     Dates: start: 20130323
  9. FLUTICASONE PROPIONATE AND SALMETEROL [Concomitant]
     Active Substance: FLUTICASONE PROPIONATE\SALMETEROL XINAFOATE
     Route: 055
     Dates: start: 20130323
  10. DIPHENHYDRAMINE. [Concomitant]
     Active Substance: DIPHENHYDRAMINE
     Dates: end: 20151123
  11. FENOTEROL 0.05 MG / IPRATROPIUM 0.02 MG [Concomitant]
     Route: 055
     Dates: start: 20130323
  12. ACETYLCYSTEINE. [Concomitant]
     Active Substance: ACETYLCYSTEINE
     Dates: start: 20130323, end: 20130331
  13. THEOPHYLLINE ANHYDROUS. [Concomitant]
     Active Substance: THEOPHYLLINE ANHYDROUS
     Dates: start: 20130323
  14. DIOSMIN 450 MG / HESPERIDIN 50 MG [Concomitant]
     Dates: start: 20130323
  15. HYDROMORPHONE HCL [Concomitant]
     Active Substance: HYDROMORPHONE HYDROCHLORIDE
     Dates: start: 20151123
  16. SERTRALINE [Concomitant]
     Active Substance: SERTRALINE HYDROCHLORIDE
     Dates: start: 20151123
  17. RISPERIDONE. [Concomitant]
     Active Substance: RISPERIDONE
     Dates: start: 20151123
  18. TRAMADOL. [Concomitant]
     Active Substance: TRAMADOL
     Dates: start: 20130323
  19. LEVOTHYROXINE. [Concomitant]
     Active Substance: LEVOTHYROXINE
  20. PRAMIPEXOLE. [Concomitant]
     Active Substance: PRAMIPEXOLE
  21. DULOXETINE. [Concomitant]
     Active Substance: DULOXETINE
     Dates: start: 20130323
  22. OMEPRAZOLE. [Concomitant]
     Active Substance: OMEPRAZOLE
     Dates: start: 20130323
  23. OXYGEN. [Concomitant]
     Active Substance: OXYGEN
     Dates: start: 20130323
  24. ASPIRIN. [Concomitant]
     Active Substance: ASPIRIN
     Dates: start: 20151123
  25. BISOPROLOL FUMARATE. [Concomitant]
     Active Substance: BISOPROLOL FUMARATE
     Dates: start: 20151123
  26. PREDNISONE. [Concomitant]
     Active Substance: PREDNISONE
     Dates: start: 20130323
  27. VITAMIN D [Concomitant]
     Active Substance: CHOLECALCIFEROL
     Dates: start: 20130323
  28. ALPRAZOLAM. [Concomitant]
     Active Substance: ALPRAZOLAM
     Dates: start: 20151123
  29. FUROSEMIDE. [Concomitant]
     Active Substance: FUROSEMIDE
     Dates: end: 20151123
  30. ATORVASTATIN CALCIUM. [Concomitant]
     Active Substance: ATORVASTATIN CALCIUM
     Dates: start: 20130323
  31. ACETAZOLAMIDE. [Concomitant]
     Active Substance: ACETAZOLAMIDE
     Dates: start: 20151123

REACTIONS (12)
  - Urinary tract infection [Unknown]
  - Chronic obstructive pulmonary disease [Fatal]
  - Death [Fatal]
  - Erysipelas [Unknown]
  - Acute respiratory failure [Unknown]
  - Arthralgia [Unknown]
  - Hypercapnia [Fatal]
  - Pain [Unknown]
  - Somnolence [Unknown]
  - General physical health deterioration [Unknown]
  - Acute myocardial infarction [Unknown]
  - Clostridium difficile infection [Unknown]

NARRATIVE: CASE EVENT DATE: 20130529
